FAERS Safety Report 4601858-3 (Version None)
Quarter: 2005Q1

REPORT INFORMATION
  Report Type: 
  Country: None (occurrence: None)
  Receive Date: 20050131
  Receipt Date: 20041207
  Transmission Date: 20050727
  Serious: No
  Sender: FDA-Public Use
  Company Number: 200419438US

PATIENT
  Age: 52 Year
  Sex: Female

DRUGS (6)
  1. TELITHROMYCIN (KETEK) TABLETS [Suspect]
     Indication: UPPER RESPIRATORY TRACT INFECTION
     Dosage: TWO 400 MG TABLETS MG QD
     Dates: start: 20041203, end: 20041203
  2. PANTOPRAZOLE SODIUM [Concomitant]
  3. CANDESARTAN CILEXETIL (ATACAND) [Concomitant]
  4. LEVOTHYROXINE SODIUM (LEVOXYL) [Concomitant]
  5. CALCIUM GLUCONATE [Concomitant]
  6. VITAMIN E [Concomitant]

REACTIONS (1)
  - DIARRHOEA [None]
